FAERS Safety Report 8294754-4 (Version None)
Quarter: 2012Q2

REPORT INFORMATION
  Report Type: 
  Country: None (occurrence: None)
  Receive Date: 20120418
  Receipt Date: 20120409
  Transmission Date: 20120825
  Serious: Yes (Other)
  Sender: FDA-Public Use
  Company Number: US-ASTRAZENECA-2012SE23108

PATIENT
  Age: 68 Year
  Sex: Female

DRUGS (3)
  1. NEXIUM [Suspect]
     Route: 048
  2. CRESTOR [Suspect]
     Route: 048
  3. AMITRIPTYLINE HCL [Concomitant]
     Indication: HYPERTENSION

REACTIONS (3)
  - THYROID CANCER [None]
  - GASTROOESOPHAGEAL REFLUX DISEASE [None]
  - PROTEIN TOTAL INCREASED [None]
